FAERS Safety Report 6722306-3 (Version None)
Quarter: 2010Q2

REPORT INFORMATION
  Report Type: 
  Country: None (occurrence: None)
  Receive Date: 20100512
  Receipt Date: 20100503
  Transmission Date: 20101027
  Serious: Yes (Other)
  Sender: FDA-Public Use
  Company Number: CA-PFIZER INC-2010056010

PATIENT
  Sex: Male

DRUGS (3)
  1. ZELDOX [Suspect]
     Dosage: 160 MG, 1X/DAY WITH DINNER
     Dates: start: 20091201
  2. ALCOHOL [Suspect]
     Dosage: UNK
  3. OLANZAPINE [Concomitant]
     Dosage: UNK
     Dates: end: 20091201

REACTIONS (5)
  - ALCOHOL USE [None]
  - IMPAIRED WORK ABILITY [None]
  - PANIC ATTACK [None]
  - POOR QUALITY SLEEP [None]
  - WEIGHT DECREASED [None]
